FAERS Safety Report 25113585 (Version 4)
Quarter: 2025Q2

REPORT INFORMATION
  Report Type: Report from Study
  Country: ZA (occurrence: ZA)
  Receive Date: 20250324
  Receipt Date: 20250430
  Transmission Date: 20250717
  Serious: Yes (Other)
  Sender: NOVARTIS
  Company Number: ZA-002147023-NVSC2025ZA047438

PATIENT
  Age: 17 Year
  Sex: Female

DRUGS (1)
  1. COSENTYX [Suspect]
     Active Substance: SECUKINUMAB
     Indication: Juvenile idiopathic arthritis
     Dosage: 150 MG, QMO
     Route: 058
     Dates: start: 20230602

REACTIONS (1)
  - Lower respiratory tract infection [Unknown]

NARRATIVE: CASE EVENT DATE: 20250310
